FAERS Safety Report 9490570 (Version 1)
Quarter: 2013Q3

REPORT INFORMATION
  Report Type: Spontaneous
  Country: NL (occurrence: None)
  Receive Date: 20130826
  Receipt Date: 20130826
  Transmission Date: 20140515
  Serious: Yes (Other)
  Sender: FDA-Public Use
  Company Number: AUR-APL-2013-07030

PATIENT
  Age: 80 Year
  Sex: Female
  Weight: 65 kg

DRUGS (8)
  1. OLANZAPINE [Suspect]
     Indication: PSYCHOTIC DISORDER
     Dates: start: 2012
  2. TRAZADONE [Suspect]
     Dates: start: 2012
  3. ZALDIAR [Suspect]
     Dosage: 3 DF 3 IN 1 D
     Dates: start: 20130725
  4. ACETYLSALICYCLIC ACID (ACETYLSALCYLIC ACID) [Concomitant]
  5. SIMVASTATIN (SIMVASTATIN) [Concomitant]
  6. BISOPROLOL (BISOPROLOL) [Concomitant]
  7. PREZAL (LASOPRAZOLE) [Concomitant]
  8. CALCIUM CARBONATE/COLECALCIFEROL (LEKOVIT CA) [Concomitant]

REACTIONS (3)
  - Myalgia [None]
  - Drug interaction [None]
  - Depressed level of consciousness [None]
